FAERS Safety Report 18906446 (Version 1)
Quarter: 2021Q1

REPORT INFORMATION
  Report Type: Other
  Country: GB (occurrence: GB)
  Receive Date: 20210218
  Receipt Date: 20210218
  Transmission Date: 20210420
  Serious: Yes (Life-Threatening, Other)
  Sender: FDA-Public Use
  Company Number: GB-CELLTRION INC.-2021GB001907

PATIENT

DRUGS (1)
  1. INFLIXIMAB (UNKNOWN) [Suspect]
     Active Substance: INFLIXIMAB
     Indication: CROHN^S DISEASE
     Dosage: 600 MG (5TH DOSE)
     Route: 042
     Dates: start: 20210210, end: 20210210

REACTIONS (3)
  - Underdose [Unknown]
  - Hypotension [Recovered/Resolved]
  - Urticaria [Unknown]
